FAERS Safety Report 7213490-6 (Version None)
Quarter: 2011Q1

REPORT INFORMATION
  Report Type: 
  Country: None (occurrence: None)
  Receive Date: 20110106
  Receipt Date: 20101223
  Transmission Date: 20110831
  Serious: Yes (Other)
  Sender: FDA-Public Use
  Company Number: PHHY2010CH87704

PATIENT
  Age: 72 Year
  Sex: Male
  Weight: 65 kg

DRUGS (9)
  1. BELOC ZOK [Concomitant]
     Dosage: 100 MG, QD
     Route: 048
  2. VANCOMYCIN [Suspect]
     Indication: INFECTION
     Dosage: UNK
  3. RIFAMPICIN [Suspect]
     Dosage: UNK
     Dates: start: 20020130, end: 20020215
  4. ZESTRIL [Concomitant]
     Dosage: 2.5 MG, QD
     Route: 048
  5. MARCOUMAR [Concomitant]
     Route: 048
  6. ASPIRIN [Concomitant]
     Dosage: 100 MG, QD
     Route: 048
  7. ATROVENT [Concomitant]
     Dosage: UNK
  8. PRAVASTATIN [Concomitant]
     Dosage: 20 MG, QD
     Route: 048
  9. VENTOLIN [Concomitant]
     Dosage: UNK

REACTIONS (4)
  - ASPARTATE AMINOTRANSFERASE INCREASED [None]
  - HEPATIC ENZYME INCREASED [None]
  - BLOOD LACTATE DEHYDROGENASE INCREASED [None]
  - ALANINE AMINOTRANSFERASE INCREASED [None]
